FAERS Safety Report 6381610-1 (Version None)
Quarter: 2009Q3

REPORT INFORMATION
  Report Type: 
  Country: None (occurrence: None)
  Receive Date: 20090925
  Receipt Date: 20090910
  Transmission Date: 20100115
  Serious: Yes (Death, Life-Threatening)
  Sender: FDA-Public Use
  Company Number: 2009002153

PATIENT
  Age: 73 Year
  Sex: Male
  Weight: 47.7 kg

DRUGS (8)
  1. ERLOTINIB HYDROCHLORIDE [Suspect]
     Indication: NON-SMALL CELL LUNG CANCER
     Dosage: (150 MG, QD), ORAL
     Route: 048
     Dates: start: 20090619, end: 20090702
  2. ASPIRIN [Concomitant]
  3. LUPRAC [Concomitant]
  4. MAINTATE (BISOPROLOL FUMARATE) [Concomitant]
  5. LIVALO [Concomitant]
  6. ALLOPURINOL [Concomitant]
  7. FERRUM [Concomitant]
  8. ALDACTONE [Concomitant]

REACTIONS (18)
  - CHOLELITHIASIS [None]
  - CONDITION AGGRAVATED [None]
  - CULTURE STOOL POSITIVE [None]
  - DIARRHOEA [None]
  - DILATATION INTRAHEPATIC DUCT ACQUIRED [None]
  - DISSEMINATED INTRAVASCULAR COAGULATION [None]
  - GALLBLADDER OEDEMA [None]
  - GENERAL PHYSICAL HEALTH DETERIORATION [None]
  - HEPATIC FUNCTION ABNORMAL [None]
  - HYPERAMYLASAEMIA [None]
  - MELAENA [None]
  - MULTI-ORGAN FAILURE [None]
  - PANCREATIC CYST [None]
  - PLEURAL EFFUSION [None]
  - RENAL FAILURE [None]
  - SHOCK [None]
  - STEVENS-JOHNSON SYNDROME [None]
  - STOMATITIS [None]
